FAERS Safety Report 8846617 (Version 1)
Quarter: 2012Q4

REPORT INFORMATION
  Report Type: 
  Country: IT (occurrence: IT)
  Receive Date: 20121017
  Receipt Date: 20121017
  Transmission Date: 20130627
  Serious: Yes (Other)
  Sender: FDA-Public Use
  Company Number: IT-ROCHE-1142683

PATIENT

DRUGS (4)
  1. BEVACIZUMAB [Suspect]
     Indication: RENAL CELL CARCINOMA
     Route: 065
  2. SUNITINIB [Suspect]
     Indication: RENAL CELL CARCINOMA
     Route: 065
  3. TEMSIROLIMUS [Suspect]
     Indication: RENAL CELL CARCINOMA
     Route: 065
  4. SORAFENIB [Suspect]
     Indication: RENAL CELL CARCINOMA
     Route: 065

REACTIONS (11)
  - Anaemia [Unknown]
  - Stomatitis [Unknown]
  - Hyperglycaemia [Unknown]
  - Hypertriglyceridaemia [Unknown]
  - Hypercholesterolaemia [Unknown]
  - Asthenia [Unknown]
  - Pulmonary toxicity [Unknown]
  - Diarrhoea [Unknown]
  - Rash [Unknown]
  - Neutropenia [Unknown]
  - Thrombocytopenia [Unknown]
